FAERS Safety Report 14735702 (Version 4)
Quarter: 2018Q2

REPORT INFORMATION
  Report Type: Report from Study
  Country: CA (occurrence: CA)
  Receive Date: 20180409
  Receipt Date: 20180511
  Transmission Date: 20180711
  Serious: Yes (Other)
  Sender: FDA-Public Use
  Company Number: CA-JNJFOC-20180408078

PATIENT
  Age: 79 Year
  Sex: Male
  Weight: 73 kg

DRUGS (1)
  1. SIMPONI [Suspect]
     Active Substance: GOLIMUMAB
     Indication: RHEUMATOID ARTHRITIS
     Route: 042
     Dates: start: 20150922

REACTIONS (1)
  - Basal cell carcinoma [Recovering/Resolving]

NARRATIVE: CASE EVENT DATE: 20180403
